FAERS Safety Report 9701262 (Version 2)
Quarter: 2015Q3

REPORT INFORMATION
  Report Type: Spontaneous
  Country: US (occurrence: US)
  Receive Date: 20131121
  Receipt Date: 20150803
  Transmission Date: 20151125
  Serious: No
  Sender: FDA-Public Use
  Company Number: US-GILEAD-2008-0016144

PATIENT
  Age: 79 Year
  Sex: Female
  Weight: 40.82 kg

DRUGS (3)
  1. COUMADIN [Concomitant]
     Active Substance: WARFARIN SODIUM
     Route: 048
  2. LETAIRIS [Suspect]
     Active Substance: AMBRISENTAN
     Indication: PULMONARY ARTERIAL HYPERTENSION
     Route: 048
     Dates: start: 20080214
  3. LISINOPRIL. [Concomitant]
     Active Substance: LISINOPRIL
     Route: 048

REACTIONS (8)
  - Constipation [Unknown]
  - Dizziness [Unknown]
  - Nasal discomfort [Unknown]
  - Abdominal pain [Unknown]
  - Throat irritation [Unknown]
  - Oedema [Unknown]
  - Nasal congestion [Unknown]
  - Headache [Unknown]
